FAERS Safety Report 24724762 (Version 1)
Quarter: 2024Q4

REPORT INFORMATION
  Report Type: Spontaneous
  Country: US (occurrence: US)
  Receive Date: 20241212
  Receipt Date: 20241212
  Transmission Date: 20250115
  Serious: No
  Sender: CHATTEM
  Company Number: US-OPELLA-2024OHG040524

PATIENT
  Age: 8 Year

DRUGS (1)
  1. CHILDRENS XYZAL ALLERGY 24HR [Suspect]
     Active Substance: LEVOCETIRIZINE DIHYDROCHLORIDE
     Indication: Urticaria

REACTIONS (2)
  - Urticaria [Unknown]
  - Product taste abnormal [Unknown]
